FAERS Safety Report 9750017 (Version 2)
Quarter: 2013Q4

REPORT INFORMATION
  Report Type: Spontaneous
  Country: DE (occurrence: DE)
  Receive Date: 20131212
  Receipt Date: 20131212
  Transmission Date: 20140711
  Serious: No
  Sender: FDA-Public Use
  Company Number: DE-GILEAD-DE-CVT-090539

PATIENT
  Age: 86 Year
  Sex: Male

DRUGS (10)
  1. RANEXA [Suspect]
     Indication: ANGINA PECTORIS
     Route: 048
     Dates: start: 20090818, end: 20090825
  2. NITROLINGUAL [Concomitant]
  3. ZOLOFT [Concomitant]
     Route: 048
  4. SPASMEX [Concomitant]
     Route: 048
  5. LEVODOPA [Concomitant]
     Route: 048
  6. SIMVASTATIN [Concomitant]
     Route: 048
  7. RAMIPRIL /00885601/ [Concomitant]
     Route: 048
  8. ASS [Concomitant]
  9. METAHYDRIN [Concomitant]
     Route: 048
  10. PENTALONG [Concomitant]
     Route: 048

REACTIONS (3)
  - Malaise [Recovered/Resolved]
  - Nausea [Recovered/Resolved]
  - Vomiting [Recovered/Resolved]
